FAERS Safety Report 6888381-0 (Version None)
Quarter: 2010Q3

REPORT INFORMATION
  Report Type: 
  Country: None (occurrence: None)
  Receive Date: 20100730
  Receipt Date: 20100717
  Transmission Date: 20110219
  Serious: Yes (Hospitalization)
  Sender: FDA-Public Use
  Company Number: TN-ROCHE-716205

PATIENT
  Age: 52 Year
  Sex: Female

DRUGS (2)
  1. PEGASYS [Suspect]
     Route: 058
     Dates: start: 20090209
  2. COPEGUS [Suspect]
     Route: 048
     Dates: start: 20090209

REACTIONS (6)
  - BASEDOW'S DISEASE [None]
  - CHEST PAIN [None]
  - DYSPNOEA [None]
  - HYDROTHORAX [None]
  - PLEURAL DISORDER [None]
  - PYREXIA [None]
